FAERS Safety Report 10169681 (Version 1)
Quarter: 2014Q2

REPORT INFORMATION
  Report Type: Spontaneous
  Country: GB (occurrence: GB)
  Receive Date: 20140513
  Receipt Date: 20140513
  Transmission Date: 20141212
  Serious: Yes (Other)
  Sender: FDA-Public Use
  Company Number: GB-PFIZER INC-2014128800

PATIENT
  Age: 50 Year
  Sex: Male
  Weight: 96 kg

DRUGS (2)
  1. AMLODIPINE BESILATE [Suspect]
     Dosage: 5 MG, UNK
     Dates: start: 201304, end: 20140402
  2. AMLODIPINE [Suspect]
     Indication: HYPERTENSION
     Dosage: UNK
     Route: 048
     Dates: start: 20140402

REACTIONS (1)
  - Tunnel vision [Recovered/Resolved with Sequelae]
